FAERS Safety Report 8774551 (Version 2)
Quarter: 2013Q2

REPORT INFORMATION
  Report Type: Spontaneous
  Country: US (occurrence: US)
  Receive Date: 20120907
  Receipt Date: 20130517
  Transmission Date: 20140414
  Serious: No
  Sender: FDA-Public Use
  Company Number: US-BIOGENIDEC-2012BI035609

PATIENT
  Sex: Female

DRUGS (2)
  1. TYSABRI [Suspect]
     Indication: MULTIPLE SCLEROSIS
     Route: 042
     Dates: start: 20120410
  2. TYSABRI [Suspect]
     Indication: MULTIPLE SCLEROSIS
     Route: 042
     Dates: start: 20120410, end: 20130318

REACTIONS (4)
  - General symptom [Recovered/Resolved]
  - Trigeminal neuralgia [Not Recovered/Not Resolved]
  - Aphagia [Not Recovered/Not Resolved]
  - Mobility decreased [Not Recovered/Not Resolved]
